FAERS Safety Report 9525433 (Version 1)
Quarter: 2013Q3

REPORT INFORMATION
  Report Type: Spontaneous
  Country: US (occurrence: None)
  Receive Date: 20130913
  Receipt Date: 20130913
  Transmission Date: 20140515
  Serious: Yes (Hospitalization)
  Sender: FDA-Public Use
  Company Number: None

PATIENT
  Age: 72 Year
  Sex: Male

DRUGS (8)
  1. VERAPAMIL [Suspect]
  2. CLONIDINE [Suspect]
  3. EPIVIR [Concomitant]
  4. CALCIUM + VIT D [Concomitant]
  5. ALLOPURINOL [Concomitant]
  6. GLIMEPIRIDE [Concomitant]
  7. MULTIVITAMIN [Concomitant]
  8. TACROLIMUS [Concomitant]

REACTIONS (2)
  - Syncope [None]
  - Bradycardia [None]
